FAERS Safety Report 20865942 (Version 4)
Quarter: 2023Q2

REPORT INFORMATION
  Report Type: Report from Study
  Country: IL (occurrence: IL)
  Receive Date: 20220524
  Receipt Date: 20230418
  Transmission Date: 20230722
  Serious: Yes (Hospitalization, Other)
  Sender: FDA-Public Use
  Company Number: IL-ABBVIE-22K-082-4405743-00

PATIENT
  Age: 79 Year
  Sex: Male
  Weight: 95 kg

DRUGS (37)
  1. VENETOCLAX [Suspect]
     Active Substance: VENETOCLAX
     Indication: Acute myeloid leukaemia
     Dosage: 100 MILLIGRAM
     Route: 048
     Dates: start: 20220314, end: 20220314
  2. VENETOCLAX [Suspect]
     Active Substance: VENETOCLAX
     Indication: Acute myeloid leukaemia
     Dosage: 200 MILLIGRAM
     Route: 048
     Dates: start: 20220315, end: 20220315
  3. VENETOCLAX [Suspect]
     Active Substance: VENETOCLAX
     Indication: Acute myeloid leukaemia
     Dosage: 400 MILLIGRAM
     Route: 048
     Dates: start: 20220316, end: 20220404
  4. VENETOCLAX [Suspect]
     Active Substance: VENETOCLAX
     Indication: Acute myeloid leukaemia
     Dosage: 400 MILLIGRAM
     Route: 048
     Dates: start: 20220411, end: 20220501
  5. VENETOCLAX [Suspect]
     Active Substance: VENETOCLAX
     Indication: Acute myeloid leukaemia
     Dosage: 400 MG, INTERRUPTION COUNT RECOVERY (ANC, PLATELETS OR HEMOGLOBIN)
     Route: 048
     Dates: start: 20220724, end: 20220806
  6. VENETOCLAX [Suspect]
     Active Substance: VENETOCLAX
     Indication: Acute myeloid leukaemia
     Dosage: 400 MILLIGRAM
     Route: 048
     Dates: start: 20230312, end: 20230325
  7. VENETOCLAX [Suspect]
     Active Substance: VENETOCLAX
     Indication: Acute myeloid leukaemia
     Route: 048
     Dates: start: 202205, end: 202205
  8. VENETOCLAX [Suspect]
     Active Substance: VENETOCLAX
     Indication: Acute myeloid leukaemia
     Dosage: 400 MG, INTERRUPTION COUNT RECOVERY (ANC, PLATELETS OR HEMOGLOBIN)
     Route: 048
     Dates: start: 20221127, end: 20221210
  9. VENETOCLAX [Suspect]
     Active Substance: VENETOCLAX
     Indication: Acute myeloid leukaemia
     Dosage: 400 MG, INTERRUPTION COUNT RECOVERY (ANC, PLATELETS OR HEMOGLOBIN)
     Route: 048
     Dates: start: 20230101, end: 20230114
  10. VENETOCLAX [Suspect]
     Active Substance: VENETOCLAX
     Indication: Acute myeloid leukaemia
     Dosage: 400 MG, INTERRUPTION COUNT RECOVERY (ANC, PLATELETS OR HEMOGLOBIN)
     Route: 048
     Dates: start: 20220918, end: 20221001
  11. VENETOCLAX [Suspect]
     Active Substance: VENETOCLAX
     Indication: Acute myeloid leukaemia
     Dosage: 400 MG, INTERRUPTION COUNT RECOVERY (ANC, PLATELETS OR HEMOGLOBIN)
     Route: 048
     Dates: start: 20230101, end: 20230114
  12. VENETOCLAX [Suspect]
     Active Substance: VENETOCLAX
     Indication: Acute myeloid leukaemia
     Dosage: 400 MG, INTERRUPTION COUNT RECOVERY (ANC, PLATELETS OR HEMOGLOBIN)
     Route: 048
     Dates: start: 20220522, end: 20220611
  13. VENETOCLAX [Suspect]
     Active Substance: VENETOCLAX
     Indication: Acute myeloid leukaemia
     Dosage: 400 MG, INTERRUPTION COUNT RECOVERY (ANC, PLATELETS OR HEMOGLOBIN)
     Route: 048
     Dates: start: 20220724, end: 20220806
  14. VENETOCLAX [Suspect]
     Active Substance: VENETOCLAX
     Indication: Acute myeloid leukaemia
     Dosage: 400 MG, INTERRUPTION COUNT RECOVERY (ANC, PLATELETS OR HEMOGLOBIN)
     Route: 048
     Dates: start: 20221023, end: 20221105
  15. VENETOCLAX [Suspect]
     Active Substance: VENETOCLAX
     Indication: Acute myeloid leukaemia
     Dosage: 400 MG, INTERRUPTION COUNT RECOVERY (ANC, PLATELETS OR HEMOGLOBIN)
     Route: 048
     Dates: start: 20220821, end: 20220903
  16. VENETOCLAX [Suspect]
     Active Substance: VENETOCLAX
     Indication: Acute myeloid leukaemia
     Dosage: 400 MG, INTERRUPTION COUNT RECOVERY (ANC, PLATELETS OR HEMOGLOBIN)
     Route: 048
     Dates: start: 20220626, end: 20220709
  17. VENETOCLAX [Suspect]
     Active Substance: VENETOCLAX
     Indication: Acute myeloid leukaemia
     Dosage: 400 MG, INTERRUPTION COUNT RECOVERY (ANC, PLATELETS OR HEMOGLOBIN)
     Route: 048
     Dates: start: 20230205, end: 20230218
  18. VENETOCLAX [Suspect]
     Active Substance: VENETOCLAX
     Indication: Acute myeloid leukaemia
     Dosage: 400 MG, INTERRUPTION COUNT RECOVERY (ANC, PLATELETS OR HEMOGLOBIN)
     Route: 048
     Dates: start: 20220821, end: 20220903
  19. AZACITIDINE [Suspect]
     Active Substance: AZACITIDINE
     Indication: Acute myeloid leukaemia
     Dosage: 150 MILLIGRAM
     Route: 058
     Dates: start: 20220314, end: 20220320
  20. AZACITIDINE [Suspect]
     Active Substance: AZACITIDINE
     Indication: Acute myeloid leukaemia
     Dosage: 75 MG, INTERRUPTION COUNT RECOVERY (ANC, PLATELETS OR HEMOGLOBIN)
     Route: 058
     Dates: start: 20220411, end: 20220417
  21. AZACITIDINE [Suspect]
     Active Substance: AZACITIDINE
     Indication: Acute myeloid leukaemia
     Dosage: 70 MILLIGRAM
     Route: 058
     Dates: start: 20220918, end: 20220922
  22. AZACITIDINE [Suspect]
     Active Substance: AZACITIDINE
     Indication: Acute myeloid leukaemia
     Route: 058
     Dates: start: 20220522, end: 20220526
  23. AZACITIDINE [Suspect]
     Active Substance: AZACITIDINE
     Indication: Acute myeloid leukaemia
     Dosage: 70 MILLIGRAM
     Route: 058
     Dates: start: 20230205, end: 20230209
  24. AZACITIDINE [Suspect]
     Active Substance: AZACITIDINE
     Indication: Acute myeloid leukaemia
     Dosage: 70 MILLIGRAM
     Route: 058
     Dates: start: 20230101, end: 20230105
  25. AZACITIDINE [Suspect]
     Active Substance: AZACITIDINE
     Indication: Acute myeloid leukaemia
     Dosage: 70 MILLIGRAM
     Route: 058
     Dates: start: 20221127, end: 20221201
  26. AZACITIDINE [Suspect]
     Active Substance: AZACITIDINE
     Indication: Acute myeloid leukaemia
     Dosage: 70 MILLIGRAM
     Route: 058
     Dates: start: 20221023, end: 20221027
  27. AZACITIDINE [Suspect]
     Active Substance: AZACITIDINE
     Indication: Acute myeloid leukaemia
     Dosage: 100 MG, INTERRUPTION COUNT RECOVERY (ANC, PLATELETS OR HEMOGLOBIN)
     Route: 058
     Dates: start: 20220724, end: 20220728
  28. AZACITIDINE [Suspect]
     Active Substance: AZACITIDINE
     Indication: Acute myeloid leukaemia
     Dosage: 70 MG, INTERRUPTION COUNT RECOVERY (ANC, PLATELETS OR HEMOGLOBIN)
     Route: 058
     Dates: start: 20220821, end: 20220825
  29. AZACITIDINE [Suspect]
     Active Substance: AZACITIDINE
     Indication: Acute myeloid leukaemia
     Dosage: 150 MILLIGRAM
     Route: 058
     Dates: start: 20220626, end: 20220630
  30. AZACITIDINE [Suspect]
     Active Substance: AZACITIDINE
     Indication: Acute myeloid leukaemia
     Dosage: 70 MILLIGRAM
     Route: 058
     Dates: start: 20230312, end: 20230316
  31. AMLODIPINE MALEATE [Concomitant]
     Active Substance: AMLODIPINE MALEATE
     Indication: Hypertension
     Dates: start: 20160727
  32. Cadex [Concomitant]
     Indication: Benign prostatic hyperplasia
     Dates: start: 20160627
  33. OMEPRAZOLE [Concomitant]
     Active Substance: OMEPRAZOLE
     Indication: Antacid therapy
     Dates: start: 20160627
  34. Spasmex [Concomitant]
     Indication: Abdominal pain
     Dates: start: 20160627
  35. CILAZAPRIL ANHYDROUS [Concomitant]
     Active Substance: CILAZAPRIL ANHYDROUS
     Indication: Hypertension
     Dates: start: 20160627
  36. XARELTO [Concomitant]
     Active Substance: RIVAROXABAN
     Indication: Cerebrovascular accident prophylaxis
     Dates: start: 20160627
  37. CARBIDOPA\LEVODOPA [Concomitant]
     Active Substance: CARBIDOPA\LEVODOPA
     Indication: Parkinson^s disease
     Dates: start: 20160219

REACTIONS (10)
  - Fall [Recovered/Resolved]
  - Sepsis [Recovered/Resolved]
  - Febrile neutropenia [Recovered/Resolved]
  - Escherichia bacteraemia [Recovered/Resolved]
  - Neutropenia [Recovered/Resolved]
  - Bacteraemia [Recovered/Resolved]
  - Constipation [Recovered/Resolved]
  - Febrile neutropenia [Recovered/Resolved]
  - Hypotension [Recovering/Resolving]
  - Pancytopenia [Recovered/Resolved]

NARRATIVE: CASE EVENT DATE: 20220403
